FAERS Safety Report 25391473 (Version 1)
Quarter: 2025Q2

REPORT INFORMATION
  Report Type: Report from Study
  Country: IN (occurrence: IN)
  Receive Date: 20250603
  Receipt Date: 20250603
  Transmission Date: 20250717
  Serious: Yes (Hospitalization, Other)
  Sender: NOVARTIS
  Company Number: IN-002147023-NVSC2025IN032565

PATIENT
  Age: 66 Year
  Sex: Female

DRUGS (2)
  1. RIBOCICLIB [Suspect]
     Active Substance: RIBOCICLIB
     Indication: Breast cancer metastatic
     Route: 048
     Dates: start: 20240824
  2. RIBOCICLIB [Suspect]
     Active Substance: RIBOCICLIB
     Dosage: 600 MG, QD
     Route: 048
     Dates: start: 20240826

REACTIONS (9)
  - Metastases to bone [Unknown]
  - Osteosclerosis [Not Recovered/Not Resolved]
  - Pleural effusion [Recovered/Resolved]
  - Pulmonary mass [Recovered/Resolved]
  - Diabetes mellitus [Unknown]
  - Thyroid disorder [Unknown]
  - Hypertension [Unknown]
  - Nodule [Unknown]
  - Bone lesion [Unknown]

NARRATIVE: CASE EVENT DATE: 20241205
